FAERS Safety Report 5328130-0 (Version None)
Quarter: 2007Q2

REPORT INFORMATION
  Report Type: 
  Country: None (occurrence: None)
  Receive Date: 20070514
  Receipt Date: 20070501
  Transmission Date: 20071010
  Serious: Yes (Other)
  Sender: FDA-Public Use
  Company Number: 16422

PATIENT

DRUGS (1)
  1. METHYLENE BLUE [Suspect]
     Indication: CATARACT OPERATION

REACTIONS (3)
  - CORNEAL OEDEMA [None]
  - LENS DISORDER [None]
  - WRONG DRUG ADMINISTERED [None]
